FAERS Safety Report 14154831 (Version 1)
Quarter: 2017Q4

REPORT INFORMATION
  Report Type: Spontaneous
  Country: US (occurrence: US)
  Receive Date: 20171102
  Receipt Date: 20171102
  Transmission Date: 20180321
  Serious: Yes (Other)
  Sender: FDA-Public Use
  Company Number: None

PATIENT
  Age: 72 Year
  Sex: Female
  Weight: 76.5 kg

DRUGS (22)
  1. CARVIDRILOL [Concomitant]
  2. CITALOPRAM [Concomitant]
     Active Substance: CITALOPRAM HYDROBROMIDE
  3. AMITRIPTYLINE [Concomitant]
     Active Substance: AMITRIPTYLINE
  4. MAGNESIUM [Concomitant]
     Active Substance: MAGNESIUM
  5. ESSENTIAL OILS. [Concomitant]
     Active Substance: ESSENTIAL OILS
  6. CALCIUM [Concomitant]
     Active Substance: CALCIUM
  7. M FISH OIL [Concomitant]
  8. BREO ELLIPTA [Suspect]
     Active Substance: FLUTICASONE FUROATE\VILANTEROL TRIFENATATE
     Indication: CHRONIC OBSTRUCTIVE PULMONARY DISEASE
     Dosage: ?          QUANTITY:1 INHALATION(S);?
     Route: 055
     Dates: start: 20170717, end: 20171002
  9. ALIVE! NATURES WAY MULTIVITAMIN [Concomitant]
     Active Substance: MINERALS\VITAMINS
  10. VITAMIN C [Concomitant]
     Active Substance: ASCORBIC ACID
  11. ATORVASTATIN [Concomitant]
     Active Substance: ATORVASTATIN
  12. LEVOTHYROXINE. [Concomitant]
     Active Substance: LEVOTHYROXINE
  13. PROBIOTIC 10 STRAINS [Concomitant]
  14. HOST DEFENCE ORGANIC MUSHROOMS [Concomitant]
  15. AMLODIPINE BESYLATE. [Concomitant]
     Active Substance: AMLODIPINE BESYLATE
  16. ENALPRIL [Concomitant]
  17. GLUCOSAMINE CHONDROITIN [Concomitant]
     Active Substance: CHONDROITIN SULFATE (BOVINE)\GLUCOSAMINE HYDROCHLORIDE
  18. OLOPATADINE NASAL SPRAY [Concomitant]
  19. DE [Concomitant]
  20. BREO ELLIPTA [Suspect]
     Active Substance: FLUTICASONE FUROATE\VILANTEROL TRIFENATATE
     Indication: ASTHMA
     Dosage: ?          QUANTITY:1 INHALATION(S);?
     Route: 055
     Dates: start: 20170717, end: 20171002
  21. ALENDRONATE SODIUM. [Concomitant]
     Active Substance: ALENDRONATE SODIUM
  22. CANNIBIS SATIVA TINCTURE [Concomitant]

REACTIONS (2)
  - Dyspnoea [None]
  - Cough [None]

NARRATIVE: CASE EVENT DATE: 20171001
